FAERS Safety Report 21740828 (Version 1)
Quarter: 2022Q4

REPORT INFORMATION
  Report Type: Spontaneous
  Country: US (occurrence: None)
  Receive Date: 20221215
  Receipt Date: 20221215
  Transmission Date: 20230113
  Serious: Yes (Hospitalization, Other)
  Sender: FDA-Public Use
  Company Number: None

PATIENT
  Age: 67 Year
  Sex: Male
  Weight: 90 kg

DRUGS (1)
  1. CARVEDILOL [Suspect]
     Active Substance: CARVEDILOL
     Indication: Atrial fibrillation
     Dosage: 25 MG BID PO?
     Route: 048
     Dates: start: 20130109, end: 20220910

REACTIONS (5)
  - Dizziness [None]
  - Fatigue [None]
  - Bradycardia [None]
  - Inappropriate schedule of product administration [None]
  - Therapy interrupted [None]

NARRATIVE: CASE EVENT DATE: 20220910
